FAERS Safety Report 12242513 (Version 1)
Quarter: 2016Q2

REPORT INFORMATION
  Report Type: Spontaneous
  Country: US (occurrence: None)
  Receive Date: 20160405
  Receipt Date: 20160405
  Transmission Date: 20160815
  Serious: No
  Sender: FDA-Public Use
  Company Number: None

PATIENT
  Age: 58 Year
  Sex: Female
  Weight: 150.6 kg

DRUGS (9)
  1. VITAMIN E [Concomitant]
     Active Substance: .ALPHA.-TOCOPHEROL
  2. XELJANZ [Concomitant]
     Active Substance: TOFACITINIB CITRATE
  3. HYDROCHOLOTHIAZIDE 25 MG TABLET [Concomitant]
     Active Substance: HYDROCHLOROTHIAZIDE
  4. ZYPREXA [Concomitant]
     Active Substance: OLANZAPINE
  5. PANTENE [Concomitant]
  6. RAINITIDINE [Concomitant]
  7. PRISTIQ EXTENDED-RELEASE [Suspect]
     Active Substance: DESVENLAFAXINE SUCCINATE
     Indication: DEPRESSION
     Dosage: 1 PILL MORNING MOUTH
     Route: 048
     Dates: start: 20160126
  8. LORAZEPAM. [Concomitant]
     Active Substance: LORAZEPAM
  9. OMRPRAZIDE [Concomitant]

REACTIONS (7)
  - Asthenia [None]
  - Restlessness [None]
  - Disturbance in attention [None]
  - Vision blurred [None]
  - Chest discomfort [None]
  - Hyperhidrosis [None]
  - Fatigue [None]
